FAERS Safety Report 4604247-0 (Version None)
Quarter: 2005Q1

REPORT INFORMATION
  Report Type: 
  Country: None (occurrence: None)
  Receive Date: 20050308
  Receipt Date: 20050308
  Transmission Date: 20050727
  Serious: Yes (Hospitalization)
  Sender: FDA-Public Use
  Company Number: None

PATIENT
  Age: 81 Year
  Sex: Male
  Weight: 64.4108 kg

DRUGS (1)
  1. SILDENAFIL VS PLACEBO [Suspect]
     Indication: CARDIAC FAILURE CONGESTIVE
     Dosage: 75 MG PO TID
     Route: 048

REACTIONS (4)
  - CARDIAC FAILURE [None]
  - CONDITION AGGRAVATED [None]
  - PULMONARY ARTERIAL WEDGE PRESSURE INCREASED [None]
  - TRANSFUSION REACTION [None]
